FAERS Safety Report 9307498 (Version 2)
Quarter: 2013Q3

REPORT INFORMATION
  Report Type: Spontaneous
  Country: US (occurrence: US)
  Receive Date: 20130524
  Receipt Date: 20130708
  Transmission Date: 20140515
  Serious: Yes (Hospitalization, Other)
  Sender: FDA-Public Use
  Company Number: US-AMGEN-USASP2013036344

PATIENT
  Age: 83 Year
  Sex: Female
  Weight: 46.26 kg

DRUGS (6)
  1. PROLIA [Suspect]
     Indication: OSTEOPOROSIS POSTMENOPAUSAL
     Dosage: 60 MG, Q6MO
     Route: 058
     Dates: start: 20121129
  2. LOSARTAN [Concomitant]
     Dosage: 100 MG, QD
     Route: 048
  3. FUROSEMIDE [Concomitant]
     Dosage: 20 MG, QD
  4. KLOR CON [Concomitant]
     Dosage: 10 MEQ, QD
     Route: 048
  5. CYMBALTA [Concomitant]
     Dosage: 600 MG, QD
     Route: 048
  6. IBUPROFEN [Concomitant]
     Dosage: 600 MG, UNK

REACTIONS (2)
  - Atypical femur fracture [Recovering/Resolving]
  - Fall [Unknown]
